FAERS Safety Report 21398605 (Version 3)
Quarter: 2022Q4

REPORT INFORMATION
  Report Type: Spontaneous
  Country: CA (occurrence: CA)
  Receive Date: 20220930
  Receipt Date: 20221120
  Transmission Date: 20230113
  Serious: Yes (Other)
  Sender: FDA-Public Use
  Company Number: CA-CELLTRION INC.-2022CA009259

PATIENT

DRUGS (1)
  1. INFLECTRA [Suspect]
     Active Substance: INFLIXIMAB-DYYB
     Indication: Colitis ulcerative
     Dosage: 400 MG, EVERY 8 WEEK, NOT YET STARTED
     Route: 042

REACTIONS (6)
  - Fall [Unknown]
  - Ligament sprain [Unknown]
  - Ligament rupture [Unknown]
  - Off label use [Unknown]
  - Intentional product use issue [Unknown]
  - Streptococcal infection [Recovered/Resolved]
